FAERS Safety Report 23715287 (Version 2)
Quarter: 2024Q2

REPORT INFORMATION
  Report Type: Spontaneous
  Country: US (occurrence: US)
  Receive Date: 20240407
  Receipt Date: 20240511
  Transmission Date: 20240716
  Serious: No
  Sender: FDA-Public Use
  Company Number: US-GSK-US2024039961

PATIENT
  Age: 44 Year
  Sex: Male
  Weight: 83.447 kg

DRUGS (10)
  1. NUCALA [Suspect]
     Active Substance: MEPOLIZUMAB
     Indication: Product used for unknown indication
     Dosage: UNK
     Route: 058
     Dates: start: 202103
  2. PREDNISONE [Suspect]
     Active Substance: PREDNISONE
     Indication: Skin exfoliation
     Dosage: UNK
     Dates: start: 202403
  3. PREDNISONE [Suspect]
     Active Substance: PREDNISONE
     Indication: Erythema
  4. PREDNISONE [Suspect]
     Active Substance: PREDNISONE
     Indication: Skin swelling
  5. AMOXICILLIN [Suspect]
     Active Substance: AMOXICILLIN
     Indication: Skin swelling
     Dosage: UNK
     Dates: start: 202403
  6. AMOXICILLIN [Suspect]
     Active Substance: AMOXICILLIN
     Indication: Erythema
  7. AMOXICILLIN [Suspect]
     Active Substance: AMOXICILLIN
     Indication: Skin exfoliation
  8. HYDROCORTISONE [Suspect]
     Active Substance: HYDROCORTISONE
     Indication: Skin swelling
     Dosage: UNK
     Dates: start: 202403
  9. HYDROCORTISONE [Suspect]
     Active Substance: HYDROCORTISONE
     Indication: Erythema
  10. HYDROCORTISONE [Suspect]
     Active Substance: HYDROCORTISONE
     Indication: Skin exfoliation

REACTIONS (9)
  - Drug hypersensitivity [Unknown]
  - Influenza like illness [Unknown]
  - Fatigue [Unknown]
  - Skin swelling [Recovering/Resolving]
  - Erythema [Recovered/Resolved]
  - Skin exfoliation [Unknown]
  - Heart rate increased [Unknown]
  - Condition aggravated [Recovering/Resolving]
  - Alopecia [Unknown]

NARRATIVE: CASE EVENT DATE: 20240301
